FAERS Safety Report 5026072-1 (Version None)
Quarter: 2006Q2

REPORT INFORMATION
  Report Type: 
  Country: None (occurrence: None)
  Receive Date: 20060612
  Receipt Date: 20060612
  Transmission Date: 20061013
  Serious: Yes (Hospitalization)
  Sender: FDA-Public Use
  Company Number: None

PATIENT
  Sex: Male
  Weight: 102.0593 kg

DRUGS (2)
  1. LEVAQUIN [Suspect]
     Indication: SINUSITIS
     Dates: start: 20030401, end: 20030501
  2. LEVAQUIN [Suspect]
     Indication: SINUSITIS
     Dates: start: 20050501, end: 20050601

REACTIONS (1)
  - TENDON RUPTURE [None]
